FAERS Safety Report 9588193 (Version 1)
Quarter: 2013Q4

REPORT INFORMATION
  Report Type: Spontaneous
  Country: US (occurrence: US)
  Receive Date: 20131003
  Receipt Date: 20131003
  Transmission Date: 20140711
  Serious: No
  Sender: FDA-Public Use
  Company Number: US-AMGEN-USASP2012063286

PATIENT
  Age: 42 Year
  Sex: Female
  Weight: 78.01 kg

DRUGS (1)
  1. ENBREL [Suspect]
     Indication: PSORIATIC ARTHROPATHY
     Dosage: 50 MG, QWK
     Route: 058
     Dates: start: 201209

REACTIONS (2)
  - Headache [Unknown]
  - Psoriatic arthropathy [Not Recovered/Not Resolved]
